FAERS Safety Report 12304431 (Version 3)
Quarter: 2016Q3

REPORT INFORMATION
  Report Type: Spontaneous
  Country: JP (occurrence: JP)
  Receive Date: 20160426
  Receipt Date: 20160706
  Transmission Date: 20161109
  Serious: Yes (Life-Threatening, Other)
  Sender: FDA-Public Use
  Company Number: JP-009507513-1604JPN014873

PATIENT
  Age: 49 Year
  Sex: Female
  Weight: 70 kg

DRUGS (6)
  1. PROPOFOL. [Concomitant]
     Active Substance: PROPOFOL
     Dosage: DAILY DOSAGE UNKNOWN
     Route: 042
  2. ULTIVA [Concomitant]
     Active Substance: REMIFENTANIL HYDROCHLORIDE
     Dosage: TOTAL DOSE 30 MG
     Route: 042
  3. EPHEDRIN [Concomitant]
     Active Substance: EPHEDRINE HYDROCHLORIDE
     Dosage: TOTAL DOSE 32 MG
     Route: 042
  4. FENTANYL CITRATE. [Concomitant]
     Active Substance: FENTANYL CITRATE
     Dosage: TOTAL DOSE 0.3 MG,DAILY DOSE UNKNOWN
     Route: 042
  5. BRIDION [Suspect]
     Active Substance: SUGAMMADEX
     Indication: NEUROMUSCULAR BLOCKADE REVERSAL
     Dosage: 200 MG, QD
     Route: 042
     Dates: start: 20160419, end: 20160419
  6. ESLAX INTRAVENOUS 25MG/2.5ML [Concomitant]
     Active Substance: ROCURONIUM BROMIDE
     Dosage: TOTAL DOSE: 90MG
     Route: 042

REACTIONS (2)
  - Ventricular tachycardia [Recovering/Resolving]
  - Ventricular fibrillation [Recovering/Resolving]

NARRATIVE: CASE EVENT DATE: 20160419
